FAERS Safety Report 9414549 (Version 10)
Quarter: 2014Q2

REPORT INFORMATION
  Report Type: Report from Study
  Country: IT (occurrence: IT)
  Receive Date: 20130723
  Receipt Date: 20140519
  Transmission Date: 20141212
  Serious: Yes (Death, Hospitalization, Other)
  Sender: FDA-Public Use
  Company Number: PHHO2013IT009526

PATIENT
  Sex: 0

DRUGS (7)
  1. LDK378 [Suspect]
     Indication: NON-SMALL CELL LUNG CANCER
     Dosage: 750 MG, UNK
     Route: 048
     Dates: start: 20130430, end: 20130721
  2. LDK378 [Suspect]
     Dosage: 450 MG, UNK
     Route: 048
     Dates: start: 20130722, end: 20140107
  3. FUROSEMIDE [Suspect]
     Indication: OEDEMA PERIPHERAL
     Dosage: UNK
     Route: 048
     Dates: start: 20130430
  4. ALDACTONE [Suspect]
     Indication: OEDEMA PERIPHERAL
     Dosage: UNK
     Dates: start: 20130430
  5. INSULIN LISPRO [Concomitant]
     Indication: DIABETES MELLITUS
     Dosage: UNK
     Dates: start: 201101
  6. INSULIN GLARGINE [Concomitant]
     Indication: DIABETES MELLITUS
     Dosage: UNK
     Dates: start: 201101
  7. INSULIN GLULISINE [Concomitant]
     Indication: DIABETES MELLITUS
     Dosage: UNK

REACTIONS (7)
  - Renal failure [Recovered/Resolved]
  - Vomiting [Recovered/Resolved]
  - Nausea [Recovered/Resolved]
  - Dyspnoea [Fatal]
  - Bone pain [Fatal]
  - Non-small cell lung cancer [Fatal]
  - Malignant neoplasm progression [Fatal]
